FAERS Safety Report 9274768 (Version 1)
Quarter: 2013Q2

REPORT INFORMATION
  Report Type: Spontaneous
  Country: US (occurrence: None)
  Receive Date: 20130501
  Receipt Date: 20130501
  Transmission Date: 20140414
  Serious: No
  Sender: FDA-Public Use
  Company Number: None

PATIENT
  Sex: Female

DRUGS (1)
  1. MAXALT GENERIC [Suspect]
     Indication: MIGRAINE

REACTIONS (2)
  - Product substitution issue [None]
  - Drug ineffective [None]
